FAERS Safety Report 24814618 (Version 1)
Quarter: 2025Q1

REPORT INFORMATION
  Report Type: Spontaneous
  Country: US (occurrence: None)
  Receive Date: 20250106
  Receipt Date: 20250106
  Transmission Date: 20250409
  Serious: Yes (Hospitalization)
  Sender: FDA-CTU
  Company Number: None

PATIENT
  Age: 64 Year
  Sex: Female

DRUGS (2)
  1. HYRIMOZ [Suspect]
     Active Substance: ADALIMUMAB-ADAZ
     Indication: Rheumatoid arthritis
     Dosage: 40MG/0.4ML EVERY 14 DAYS UNDER THE SKIN?
     Route: 058
     Dates: start: 202406
  2. LYNPARZA [Concomitant]
     Active Substance: OLAPARIB

REACTIONS (4)
  - Rheumatoid arthritis [None]
  - Stress [None]
  - Post procedural complication [None]
  - Gait inability [None]

NARRATIVE: CASE EVENT DATE: 20241220
